FAERS Safety Report 6860710-3 (Version None)
Quarter: 2010Q3

REPORT INFORMATION
  Report Type: 
  Country: None (occurrence: None)
  Receive Date: 20100720
  Receipt Date: 20100706
  Transmission Date: 20110219
  Serious: Yes (Hospitalization, Other)
  Sender: FDA-Public Use
  Company Number: PHEH2006US12308

PATIENT
  Sex: Female

DRUGS (6)
  1. ZOMETA [Suspect]
     Indication: BONE DENSITY DECREASED
  2. HYDROCODONE [Concomitant]
  3. DURAGESIC-100 [Concomitant]
  4. MULTI-VITAMINS [Concomitant]
  5. VITAMIN C [Concomitant]
  6. CALCIUM [Concomitant]

REACTIONS (8)
  - ANXIETY [None]
  - INFECTION [None]
  - INJURY [None]
  - NECK MASS [None]
  - OSTEONECROSIS OF JAW [None]
  - PAIN [None]
  - PARANASAL SINUS HYPERSECRETION [None]
  - PHYSICAL DISABILITY [None]
